FAERS Safety Report 9324931 (Version 1)
Quarter: 2013Q2

REPORT INFORMATION
  Report Type: Spontaneous
  Country: BR (occurrence: BR)
  Receive Date: 20130603
  Receipt Date: 20130603
  Transmission Date: 20140414
  Serious: Yes (Other)
  Sender: FDA-Public Use
  Company Number: BR-PFIZER INC-2013162832

PATIENT
  Age: 77 Year
  Sex: Female
  Weight: 64 kg

DRUGS (6)
  1. XALATAN [Suspect]
     Indication: GLAUCOMA
     Dosage: 3 UG (ONE DROP IN EACH EYE) DAILY
     Route: 047
     Dates: start: 20130428
  2. XALATAN [Suspect]
     Indication: CATARACT
  3. CONCOR [Concomitant]
     Indication: HYPERTENSION
     Dosage: 1 TABLET OR CAPSULE (10MG) DAILY
  4. CONCOR [Concomitant]
     Indication: CARDIAC DISORDER
  5. RANITIDINE [Concomitant]
     Indication: GASTRIC DISORDER
     Dosage: 1 TABLET OR CAPSULE TWICE DAILY
  6. VALTRIAN [Concomitant]
     Indication: HYPERTENSION
     Dosage: 1 TABLET OR CAPSULE (50MG) TWICE DAILY
     Dates: start: 2003

REACTIONS (2)
  - Glaucoma [Unknown]
  - Cataract [Unknown]
